FAERS Safety Report 9286237 (Version 2)
Quarter: 2013Q2

REPORT INFORMATION
  Report Type: Spontaneous
  Country: BR (occurrence: BR)
  Receive Date: 20130513
  Receipt Date: 20130611
  Transmission Date: 20140414
  Serious: Yes (Other)
  Sender: FDA-Public Use
  Company Number: PHHY2013BR046680

PATIENT
  Sex: Female
  Weight: 68 kg

DRUGS (3)
  1. TRILEPTAL [Suspect]
     Indication: EPILEPSY
     Dosage: 600 MG, DAILY (2 TABLETS OF 300 MG DAILY)
     Route: 048
  2. TRILEPTAL [Suspect]
     Dosage: 1200 MG, DAILY (2 TABLETS OF 600 MG DAILY)
  3. TRILEPTAL [Suspect]
     Dosage: 300 MG, DAILY (1 TABLET DAILY)
     Route: 048
     Dates: start: 20130605

REACTIONS (2)
  - Convulsion [Not Recovered/Not Resolved]
  - Drug ineffective [Unknown]
